FAERS Safety Report 5811327-0 (Version None)
Quarter: 2008Q3

REPORT INFORMATION
  Report Type: 
  Country: None (occurrence: None)
  Receive Date: 20080710
  Receipt Date: 20080625
  Transmission Date: 20090109
  Serious: Yes (Other)
  Sender: FDA-Public Use
  Company Number: DSU-2008-00872

PATIENT
  Age: 62 Year
  Sex: Female
  Weight: 69 kg

DRUGS (3)
  1. COLESEVELAM (COLESEVELAM) (625 MILLIGRAM, TABLET) (COLESEVELAM) [Suspect]
     Indication: HYPERLIPIDAEMIA
     Dosage: 1875 MG (625 MG, TID), PER ORAL
     Route: 048
     Dates: start: 20071106, end: 20080318
  2. AMLODIPINE (AMLODIPINE) (5 MILLIGRAM, TABLET) (AMLODIPINE) [Concomitant]
  3. OMEPRAZOLE (OMEPRAZOLE) (20 MILLIGRAM TABLET) (OMEPRAZOLE) [Concomitant]

REACTIONS (1)
  - MIXED HYPERLIPIDAEMIA [None]
